FAERS Safety Report 13430007 (Version 1)
Quarter: 2017Q2

REPORT INFORMATION
  Report Type: Spontaneous
  Country: US (occurrence: US)
  Receive Date: 20170412
  Receipt Date: 20170412
  Transmission Date: 20170830
  Serious: No
  Sender: FDA-Public Use
  Company Number: US-009507513-1704USA004073

PATIENT
  Age: 35 Year
  Sex: Male

DRUGS (3)
  1. BELSOMRA [Suspect]
     Active Substance: SUVOREXANT
     Dosage: HALF OF 20 MG BELSOMRA
     Route: 048
     Dates: start: 20170404
  2. BELSOMRA [Suspect]
     Active Substance: SUVOREXANT
     Dosage: UNCUT 20 MG BELSOMRA EACH NIGHT
     Route: 048
     Dates: start: 20170405
  3. BELSOMRA [Suspect]
     Active Substance: SUVOREXANT
     Dosage: HALF OF 20 MG BELSOMRA
     Route: 048
     Dates: start: 20170404

REACTIONS (6)
  - Cold sweat [Unknown]
  - Hyperhidrosis [Unknown]
  - Anxiety [Unknown]
  - Wrong technique in product usage process [Unknown]
  - Poor quality sleep [Unknown]
  - Insomnia [Unknown]

NARRATIVE: CASE EVENT DATE: 2017
